FAERS Safety Report 6145622-5 (Version None)
Quarter: 2009Q2

REPORT INFORMATION
  Report Type: 
  Country: None (occurrence: None)
  Receive Date: 20090407
  Receipt Date: 20090326
  Transmission Date: 20091009
  Serious: Yes (Hospitalization)
  Sender: FDA-Public Use
  Company Number: DE-PFIZER INC-2009188817

PATIENT

DRUGS (9)
  1. BLINDED *PLACEBO [Suspect]
     Indication: NON-SMALL CELL LUNG CANCER
     Dosage: 37.5 MG, 1X/DAY
     Route: 048
     Dates: start: 20081106
  2. BLINDED SUNITINIB MALATE [Suspect]
     Indication: NON-SMALL CELL LUNG CANCER
     Dosage: 37.5 MG, 1X/DAY
     Route: 048
     Dates: start: 20081106
  3. *ERLOTINIB [Suspect]
     Indication: NON-SMALL CELL LUNG CANCER
     Dosage: 150 MG, 1X/DAY
     Route: 048
     Dates: start: 20081106
  4. LYRICA [Concomitant]
     Dosage: UNK
     Route: 048
     Dates: start: 20080706
  5. SPIRIVA [Concomitant]
     Dosage: UNK
     Route: 048
     Dates: start: 20081106
  6. ADVANTAN [Concomitant]
     Dosage: UNK
     Route: 003
     Dates: start: 20081120
  7. KELTICAN N [Concomitant]
     Dosage: UNK
     Route: 048
     Dates: start: 20081120
  8. DIPROGENTA [Concomitant]
     Dosage: UNK
     Route: 003
     Dates: start: 20081203
  9. LINOLA [Concomitant]
     Dosage: UNK
     Route: 003
     Dates: start: 20081217

REACTIONS (1)
  - PNEUMONIA [None]
